FAERS Safety Report 16226998 (Version 3)
Quarter: 2019Q2

REPORT INFORMATION
  Report Type: Spontaneous
  Country: CN (occurrence: CN)
  Receive Date: 20190423
  Receipt Date: 20190501
  Transmission Date: 20190711
  Serious: Yes (Death, Life-Threatening, Other)
  Sender: FDA-Public Use
  Company Number: CN-ASTRAZENECA-2019SE61274

PATIENT
  Age: 64 Year
  Sex: Male

DRUGS (10)
  1. PULMICORT RESPULES [Suspect]
     Active Substance: BUDESONIDE
     Indication: CHRONIC OBSTRUCTIVE PULMONARY DISEASE
     Route: 055
     Dates: start: 20190110, end: 20190117
  2. ACETYLCYSTEINE. [Concomitant]
     Active Substance: ACETYLCYSTEINE
     Indication: PRODUCTIVE COUGH
  3. PULMICORT RESPULES [Suspect]
     Active Substance: BUDESONIDE
     Indication: RESPIRATORY FAILURE
     Route: 055
     Dates: start: 20190110, end: 20190117
  4. VANTOLIN [Concomitant]
     Indication: TRACHEAL OBSTRUCTION
  5. PIPERACILLIN. [Concomitant]
     Active Substance: PIPERACILLIN SODIUM
     Indication: INFECTION
  6. VANTOLIN [Concomitant]
     Indication: PRODUCTIVE COUGH
  7. PROCATEROL HYDROCHLORIDE [Concomitant]
     Active Substance: PROCATEROL HYDROCHLORIDE
     Indication: TRACHEAL OBSTRUCTION
  8. ACETYLCYSTEINE. [Concomitant]
     Active Substance: ACETYLCYSTEINE
     Indication: TRACHEAL OBSTRUCTION
  9. PROCATEROL HYDROCHLORIDE [Concomitant]
     Active Substance: PROCATEROL HYDROCHLORIDE
     Indication: PRODUCTIVE COUGH
  10. DOXOFYLLINE [Concomitant]
     Active Substance: DOXOFYLLINE
     Indication: ASTHMA

REACTIONS (9)
  - Hepatitis B surface antigen positive [Unknown]
  - Blood potassium increased [Unknown]
  - Renal impairment [Unknown]
  - Myocardial infarction [Unknown]
  - Heart rate decreased [Unknown]
  - Bronchitis bacterial [Unknown]
  - Hypocalcaemia [Unknown]
  - Gastrointestinal haemorrhage [Fatal]
  - Hepatic function abnormal [Unknown]

NARRATIVE: CASE EVENT DATE: 20190117
